FAERS Safety Report 11687715 (Version 1)
Quarter: 2015Q4

REPORT INFORMATION
  Report Type: Spontaneous
  Country: GB (occurrence: GB)
  Receive Date: 20151030
  Receipt Date: 20151030
  Transmission Date: 20160304
  Serious: Yes (Other)
  Sender: FDA-Public Use
  Company Number: GB-BAUSCH-BL-2015-025505

PATIENT
  Age: 4 Year
  Sex: Male

DRUGS (1)
  1. MINIMS CYCLOPENTOLATE HYDROCHLORIDE 1.0%  W/V EYE DROPS, SOLUTION [Suspect]
     Active Substance: CYCLOPENTOLATE HYDROCHLORIDE
     Indication: CYCLOPLEGIC REFRACTION
     Dosage: ADMINISTERED 1 DROP TO EACH EYE
     Route: 047

REACTIONS (1)
  - Eyelid oedema [Recovered/Resolved]
